FAERS Safety Report 14509706 (Version 1)
Quarter: 2018Q1

REPORT INFORMATION
  Report Type: Spontaneous
  Country: US (occurrence: US)
  Receive Date: 20180209
  Receipt Date: 20180209
  Transmission Date: 20180509
  Serious: Yes (Death, Hospitalization)
  Sender: FDA-Public Use
  Company Number: US-WEST-WARD PHARMACEUTICALS CORP.-US-H14001-18-00845

PATIENT
  Age: 51 Year
  Sex: Male

DRUGS (1)
  1. AMLODIPINE [Suspect]
     Active Substance: AMLODIPINE BESYLATE
     Indication: PRODUCT USED FOR UNKNOWN INDICATION
     Route: 065

REACTIONS (7)
  - Toxicity to various agents [Fatal]
  - Pulmonary oedema [Fatal]
  - Acidosis [Fatal]
  - Multiple organ dysfunction syndrome [Fatal]
  - Peripheral ischaemia [Unknown]
  - Intentional overdose [Fatal]
  - Cardiac failure [Fatal]
